FAERS Safety Report 8196080-0 (Version None)
Quarter: 2012Q1

REPORT INFORMATION
  Report Type: 
  Country: None (occurrence: None)
  Receive Date: 20120309
  Receipt Date: 20120302
  Transmission Date: 20120608
  Serious: No
  Sender: FDA-Public Use
  Company Number: US-BIOGENIDEC-2012BI007772

PATIENT
  Age: 61 Year
  Sex: Male

DRUGS (4)
  1. AVONEX [Suspect]
     Indication: MULTIPLE SCLEROSIS
     Route: 030
     Dates: start: 20051015, end: 20061221
  2. AVONEX [Suspect]
     Route: 030
     Dates: start: 20070101, end: 20071216
  3. AVONEX [Suspect]
     Route: 030
     Dates: start: 20090317
  4. AVONEX [Suspect]
     Route: 030
     Dates: start: 20080415, end: 20090201

REACTIONS (1)
  - FALL [None]
